FAERS Safety Report 19888083 (Version 2)
Quarter: 2021Q4

REPORT INFORMATION
  Report Type: Report from Study
  Country: SG (occurrence: SG)
  Receive Date: 20210927
  Receipt Date: 20211028
  Transmission Date: 20220303
  Serious: Yes (Other)
  Sender: FDA-Public Use
  Company Number: NVSC2021SG213212

PATIENT
  Age: 67 Year
  Sex: Female
  Weight: 64.55 kg

DRUGS (2)
  1. CAPMATINIB [Suspect]
     Active Substance: CAPMATINIB
     Indication: Lung adenocarcinoma
     Dosage: 300 MG, BID
     Route: 048
     Dates: start: 20191120, end: 20210808
  2. IRESSA [Concomitant]
     Active Substance: GEFITINIB
     Indication: Lung neoplasm malignant
     Dosage: 250 MG/G
     Route: 065
     Dates: start: 20191120, end: 20210808

REACTIONS (3)
  - Lung adenocarcinoma [Not Recovered/Not Resolved]
  - Malignant neoplasm progression [Not Recovered/Not Resolved]
  - Drug resistance [Unknown]

NARRATIVE: CASE EVENT DATE: 20210808
